FAERS Safety Report 4693888-0 (Version None)
Quarter: 2005Q2

REPORT INFORMATION
  Report Type: 
  Country: None (occurrence: None)
  Receive Date: 20050616
  Receipt Date: 20050601
  Transmission Date: 20051028
  Serious: Yes (Disabling)
  Sender: FDA-Public Use
  Company Number: S05-PRT-02115-01

PATIENT
  Age: 70 Year
  Sex: Female

DRUGS (3)
  1. EBIXA (MEMANTINE) [Suspect]
     Indication: DEMENTIA
     Dosage: 5 MG QD PO
     Route: 048
     Dates: start: 20050428, end: 20050506
  2. SINEMET [Concomitant]
  3. SELEGILINE HYDROCHLORIDE [Concomitant]

REACTIONS (1)
  - GLOSSODYNIA [None]
